FAERS Safety Report 23665495 (Version 1)
Quarter: 2024Q1

REPORT INFORMATION
  Report Type: Spontaneous
  Country: CN (occurrence: CN)
  Receive Date: 20240323
  Receipt Date: 20240323
  Transmission Date: 20240410
  Serious: Yes (Hospitalization)
  Sender: FDA-Public Use
  Company Number: None

PATIENT
  Age: 37 Year
  Sex: Male
  Weight: 57.606 kg

DRUGS (1)
  1. ALPHAGAN P [Suspect]
     Active Substance: BRIMONIDINE TARTRATE
     Indication: Intraocular pressure increased
     Dosage: DAILY DOSE: 0.1 ML
     Route: 047
     Dates: start: 20230210

REACTIONS (5)
  - Ocular hyperaemia [Recovered/Resolved]
  - Eye discharge [Recovered/Resolved]
  - Conjunctivitis allergic [Recovered/Resolved]
  - Conjunctival hyperaemia [Recovered/Resolved]
  - Conjunctivitis [Recovered/Resolved]

NARRATIVE: CASE EVENT DATE: 20230216
